FAERS Safety Report 4686084-4 (Version None)
Quarter: 2005Q2

REPORT INFORMATION
  Report Type: 
  Country: None (occurrence: None)
  Receive Date: 20050609
  Receipt Date: 19910805
  Transmission Date: 20051028
  Serious: Yes (Other)
  Sender: FDA-Public Use
  Company Number: 199101546HAG

PATIENT
  Age: 55 Year
  Sex: Male
  Weight: 61 kg

DRUGS (9)
  1. LASIX [Suspect]
     Indication: CARDIOMYOPATHY
     Route: 048
  2. CORDARONE [Suspect]
     Route: 048
     Dates: start: 19870820, end: 19900815
  3. LANOXIN [Suspect]
     Indication: ARRHYTHMIA
     Route: 048
     Dates: start: 19840327
  4. CHLOTRIDE [Suspect]
     Indication: CARDIOMYOPATHY
     Route: 048
  5. WARFARIN SODIUM [Suspect]
     Indication: CARDIOMYOPATHY
     Route: 048
     Dates: start: 19840301
  6. THEO-DUR [Suspect]
  7. ENALAPRIL MALEATE [Suspect]
     Route: 048
  8. ZYLOPRIM [Suspect]
     Indication: GOUT
  9. THIAMINE [Suspect]

REACTIONS (1)
  - HYPERTHYROIDISM [None]
